FAERS Safety Report 5800996-7 (Version None)
Quarter: 2008Q3

REPORT INFORMATION
  Report Type: 
  Country: None (occurrence: None)
  Receive Date: 20080702
  Receipt Date: 20080620
  Transmission Date: 20090109
  Serious: Yes (Death)
  Sender: FDA-Public Use
  Company Number: 2008AL007392

PATIENT
  Age: 79 Year
  Sex: Female
  Weight: 56.6996 kg

DRUGS (1)
  1. DIGOXIN [Suspect]

REACTIONS (4)
  - ASTHENIA [None]
  - DYSSTASIA [None]
  - STOMACH DISCOMFORT [None]
  - UNRESPONSIVE TO STIMULI [None]
